FAERS Safety Report 19420760 (Version 1)
Quarter: 2021Q2

REPORT INFORMATION
  Report Type: Spontaneous
  Country: US (occurrence: US)
  Receive Date: 20210616
  Receipt Date: 20210616
  Transmission Date: 20210717
  Serious: No
  Sender: FDA-Public Use
  Company Number: US-APOTEX-2021AP013140

PATIENT
  Age: 3 Month

DRUGS (1)
  1. SIROLIMUS ORAL SOLUTION [Suspect]
     Active Substance: SIROLIMUS
     Indication: NEOPLASM
     Dosage: UNK
     Route: 065

REACTIONS (1)
  - Off label use [Unknown]
